FAERS Safety Report 17543902 (Version 1)
Quarter: 2020Q1

REPORT INFORMATION
  Report Type: Report from Study
  Country: CO (occurrence: CO)
  Receive Date: 20200316
  Receipt Date: 20200316
  Transmission Date: 20200409
  Serious: Yes (Hospitalization, Other)
  Sender: FDA-Public Use
  Company Number: CO-AMGEN-COLSL2019149520

PATIENT
  Age: 77 Year
  Sex: Male

DRUGS (2)
  1. NATURAL TEARS [Concomitant]
     Active Substance: POLYVINYL ALCOHOL\POVIDONE
     Dosage: UNK
     Dates: start: 20200110
  2. VECTIBIX [Suspect]
     Active Substance: PANITUMUMAB
     Indication: COLORECTAL CANCER METASTATIC
     Dosage: 400 MILLIGRAM, Q2WK
     Route: 042
     Dates: start: 20190625

REACTIONS (6)
  - Jaundice [Recovering/Resolving]
  - Influenza [Recovering/Resolving]
  - Decreased immune responsiveness [Not Recovered/Not Resolved]
  - Visual impairment [Not Recovered/Not Resolved]
  - Periorbital haemorrhage [Not Recovered/Not Resolved]
  - Skin reaction [Not Recovered/Not Resolved]

NARRATIVE: CASE EVENT DATE: 20190823
